FAERS Safety Report 4873520-3 (Version None)
Quarter: 2005Q4

REPORT INFORMATION
  Report Type: 
  Country: None (occurrence: None)
  Receive Date: 20051201
  Receipt Date: 20050822
  Transmission Date: 20060501
  Serious: No
  Sender: FDA-Public Use
  Company Number: 2005PV001444

PATIENT
  Age: 63 Year
  Sex: Female
  Weight: 72.1219 kg

DRUGS (15)
  1. BYETTA [Suspect]
     Indication: DIABETES MELLITUS NON-INSULIN-DEPENDENT
     Dosage: SEE IMAGE
     Route: 058
     Dates: start: 20050720, end: 20050819
  2. BYETTA [Suspect]
     Indication: DIABETES MELLITUS NON-INSULIN-DEPENDENT
     Dosage: SEE IMAGE
     Route: 058
     Dates: start: 20050820
  3. GLUCOPHAGE [Concomitant]
  4. LOVASTATIN [Concomitant]
  5. ZETIA [Concomitant]
  6. DETROL [Concomitant]
  7. PAXIL [Concomitant]
  8. CHLORTHALIDONE [Concomitant]
  9. NEXIUM [Concomitant]
  10. LISINOPRIL [Concomitant]
  11. VIVELLE [Concomitant]
  12. CELEBREX [Concomitant]
  13. ASPIRIN [Concomitant]
  14. AMARYL [Concomitant]
  15. AVANDIA [Concomitant]

REACTIONS (1)
  - BLOOD GLUCOSE INCREASED [None]
